FAERS Safety Report 22331914 (Version 1)
Quarter: 2023Q2

REPORT INFORMATION
  Report Type: Spontaneous
  Country: US (occurrence: US)
  Receive Date: 20230517
  Receipt Date: 20230517
  Transmission Date: 20230722
  Serious: Yes (Other)
  Sender: FDA-Public Use
  Company Number: US-BRISTOL-MYERS SQUIBB COMPANY-2023-066686

PATIENT
  Age: 72 Year
  Sex: Female

DRUGS (1)
  1. SPRYCEL [Suspect]
     Active Substance: DASATINIB
     Indication: Chronic myeloid leukaemia
     Route: 048

REACTIONS (6)
  - Headache [Unknown]
  - Eye pain [Unknown]
  - Dyspnoea [Unknown]
  - Urine output increased [Unknown]
  - Pulmonary oedema [Unknown]
  - Fluid retention [Unknown]
